FAERS Safety Report 25964184 (Version 1)
Quarter: 2025Q4

REPORT INFORMATION
  Report Type: Spontaneous
  Country: US (occurrence: None)
  Receive Date: 20251027
  Receipt Date: 20251027
  Transmission Date: 20260118
  Serious: Yes (Hospitalization)
  Sender: FDA-CTU
  Company Number: None

PATIENT
  Age: 59 Year
  Sex: Female
  Weight: 80 kg

DRUGS (1)
  1. LENALIDOMIDE [Suspect]
     Active Substance: LENALIDOMIDE
     Indication: Plasma cell myeloma
     Dosage: FREQUENCY : DAILY;?
     Route: 048
     Dates: start: 20250801, end: 20250818

REACTIONS (5)
  - Hypoxia [None]
  - Dyspnoea [None]
  - Hypervolaemia [None]
  - Cardiac failure chronic [None]
  - Pulmonary embolism [None]

NARRATIVE: CASE EVENT DATE: 20250818
